FAERS Safety Report 9817798 (Version 1)
Quarter: 2014Q1

REPORT INFORMATION
  Report Type: Spontaneous
  Country: US (occurrence: None)
  Receive Date: 20140110
  Receipt Date: 20140110
  Transmission Date: 20141002
  Serious: Yes (Hospitalization)
  Sender: FDA-Public Use
  Company Number: None

PATIENT
  Age: 65 Year
  Sex: Male
  Weight: 118.3 kg

DRUGS (2)
  1. ENOXAPARIN [Suspect]
     Indication: DEEP VEIN THROMBOSIS
  2. ENOXAPARIN [Suspect]

REACTIONS (5)
  - Gastric haemorrhage [None]
  - Haematoma [None]
  - Haemoglobin decreased [None]
  - Staphylococcal osteomyelitis [None]
  - Serratia infection [None]
